FAERS Safety Report 5300033-7 (Version None)
Quarter: 2007Q2

REPORT INFORMATION
  Report Type: 
  Country: None (occurrence: None)
  Receive Date: 20070410
  Receipt Date: 20070330
  Transmission Date: 20071010
  Serious: Yes (Life-Threatening)
  Sender: FDA-Public Use
  Company Number: B0463879A

PATIENT
  Sex: 0

DRUGS (2)
  1. PAXIL [Suspect]
     Indication: DEPRESSION
     Dosage: 20 MG / PER DAY / TRANSPLACENTARY
     Route: 064
  2. CLONAZEPAM [Suspect]
     Indication: DEPRESSION
     Dosage: UNK / D??????????????????????????

REACTIONS (3)
  - DRUG EXPOSURE DURING PREGNANCY [None]
  - HYPOTONIA NEONATAL [None]
  - NEONATAL RESPIRATORY FAILURE [None]
